FAERS Safety Report 6911255-3 (Version None)
Quarter: 2010Q3

REPORT INFORMATION
  Report Type: 
  Country: None (occurrence: None)
  Receive Date: 20100806
  Receipt Date: 20100728
  Transmission Date: 20110219
  Serious: Yes (Other)
  Sender: FDA-Public Use
  Company Number: PHHY2010BR49660

PATIENT
  Sex: Female

DRUGS (1)
  1. RASILEZ HCT [Suspect]
     Dosage: 300/12.5 MG
     Route: 048

REACTIONS (1)
  - HYPERTENSION [None]
